FAERS Safety Report 15721798 (Version 1)
Quarter: 2018Q4

REPORT INFORMATION
  Report Type: Spontaneous
  Country: US (occurrence: US)
  Receive Date: 20181214
  Receipt Date: 20181214
  Transmission Date: 20190205
  Serious: No
  Sender: FDA-Public Use
  Company Number: US-PFIZER INC-2018507995

PATIENT
  Age: 61 Year
  Sex: Female
  Weight: 91.63 kg

DRUGS (1)
  1. GABAPENTIN. [Suspect]
     Active Substance: GABAPENTIN
     Dosage: 800 MG, 3X/DAY [ONE PILL EVERY 8 HOURS]

REACTIONS (2)
  - Condition aggravated [Unknown]
  - Paraesthesia [Unknown]
